FAERS Safety Report 6349332-0 (Version None)
Quarter: 2009Q3

REPORT INFORMATION
  Report Type: 
  Country: None (occurrence: None)
  Receive Date: 20090911
  Receipt Date: 20090831
  Transmission Date: 20100115
  Serious: Yes (Other)
  Sender: FDA-Public Use
  Company Number: B0592607A

PATIENT
  Age: 45 Year
  Sex: Female

DRUGS (2)
  1. TYKERB [Suspect]
     Route: 065
     Dates: start: 20080701
  2. CAPECITABINE [Concomitant]
     Route: 065
     Dates: start: 20080701

REACTIONS (2)
  - DERMATITIS [None]
  - SKIN REACTION [None]
